FAERS Safety Report 9276664 (Version 3)
Quarter: 2013Q2

REPORT INFORMATION
  Report Type: Spontaneous
  Country: US (occurrence: None)
  Receive Date: 20130501
  Receipt Date: 20130620
  Transmission Date: 20140414
  Serious: Yes (Death, Hospitalization)
  Sender: FDA-Public Use
  Company Number: 2013-0701

PATIENT
  Age: 57 Year
  Sex: Female
  Weight: 50.8 kg

DRUGS (15)
  1. CARFILZOMIB [Suspect]
     Indication: PLASMA CELL MYELOMA
     Route: 042
     Dates: start: 20130318, end: 20130318
  2. PANOBINOSTAT (PANOBINOSTAT) (PANOBINOSTAT) [Concomitant]
  3. DEXAMETHASONE (DEXAMETHASONE) (DEXAMETHASONE) [Concomitant]
  4. ACYCLOVIR (ACICLOVIR) (ACICLOVIR) [Concomitant]
  5. ERGOCALCIFEROL (ERGOCALCIFEROL) [Concomitant]
  6. TYLENOL EXTRA STRENGTH (PARACETAMOL) [Concomitant]
  7. BIFIDOBACTERIAM INFANTIS (BIFIDOBACTERIUM INFANTIS) [Concomitant]
  8. OMEPRAZOLE (OMEPRAZOLE) [Concomitant]
  9. GABAPENTIN (GABAPENTIN) [Concomitant]
  10. HYDROMORPHONE (HYDROMORPHONE) [Concomitant]
  11. POTASSIUM CHLORIDE (POTASSIUM CHLORIDE) [Concomitant]
  12. SIMVASTATIN (SIMVASTATIN) [Concomitant]
  13. SERTRALINE (SERTRALINE) [Concomitant]
  14. PROCHLORPERAZINE (PROCHLORPERAZINE) [Concomitant]
  15. ZOLEDRONIC ACID (ZOLEDRONIC ACID) [Concomitant]

REACTIONS (27)
  - Nausea [None]
  - Vomiting [None]
  - Pyrexia [None]
  - Plasma cell myeloma [None]
  - Fall [None]
  - Asthenia [None]
  - Clostridium difficile infection [None]
  - Anaemia [None]
  - Hypercalcaemia [None]
  - Dehydration [None]
  - Decreased appetite [None]
  - Bone pain [None]
  - Pain in extremity [None]
  - Haemostasis [None]
  - Drug ineffective [None]
  - Blood potassium decreased [None]
  - Orthostatic hypotension [None]
  - Hypophagia [None]
  - Haematemesis [None]
  - Gastritis [None]
  - Renal failure acute [None]
  - Metabolic acidosis [None]
  - Respiratory failure [None]
  - Lung infiltration [None]
  - Haemorrhagic stroke [None]
  - Brain midline shift [None]
  - Brain oedema [None]
